FAERS Safety Report 4749313-4 (Version None)
Quarter: 2005Q3

REPORT INFORMATION
  Report Type: 
  Country: None (occurrence: None)
  Receive Date: 20050812
  Receipt Date: 20050528
  Transmission Date: 20060218
  Serious: No
  Sender: FDA-Public Use
  Company Number: 406387

PATIENT
  Age: 50 Year
  Sex: Female
  Weight: 58.5 kg

DRUGS (10)
  1. PEGASYS [Suspect]
     Indication: HEPATITIS C
     Dosage: 180 MCG 1 PER WEEK SUBCUTANEOUS
     Route: 058
     Dates: start: 20050215, end: 20050503
  2. COPEGUS [Suspect]
     Indication: HEPATITIS C
     Dosage: 200 MG 6 PER DAY ORAL
     Route: 048
     Dates: start: 20050215
  3. LEXAPRO [Concomitant]
  4. PRAVASTATIN SODIUM [Concomitant]
  5. PREMARIN [Concomitant]
  6. LORATADINE [Concomitant]
  7. LORAZEPAM [Concomitant]
  8. LEVOXYL [Concomitant]
  9. VITAMIN (VITAMIN NOS) [Concomitant]
  10. ATARAX [Concomitant]

REACTIONS (3)
  - RED BLOOD CELL COUNT DECREASED [None]
  - STAPHYLOCOCCAL INFECTION [None]
  - WHITE BLOOD CELL COUNT DECREASED [None]
